FAERS Safety Report 6559763-1 (Version None)
Quarter: 2010Q1

REPORT INFORMATION
  Report Type: 
  Country: None (occurrence: None)
  Receive Date: 20100129
  Receipt Date: 20090912
  Transmission Date: 20100710
  Serious: No
  Sender: FDA-Public Use
  Company Number: US-ABBOTT-09P-163-0596879-00

PATIENT
  Sex: Female
  Weight: 46.308 kg

DRUGS (1)
  1. HUMIRA [Suspect]
     Indication: CROHN'S DISEASE
     Dosage: 80MG; DAY 15
     Dates: start: 20090821

REACTIONS (4)
  - LYMPHADENOPATHY [None]
  - RASH ERYTHEMATOUS [None]
  - RASH VESICULAR [None]
  - RHINORRHOEA [None]
